FAERS Safety Report 14284969 (Version 1)
Quarter: 2017Q4

REPORT INFORMATION
  Report Type: Spontaneous
  Country: GR (occurrence: GR)
  Receive Date: 20171214
  Receipt Date: 20171214
  Transmission Date: 20180321
  Serious: Yes (Other)
  Sender: FDA-Public Use
  Company Number: GR-009507513-1712GRC001082

PATIENT
  Sex: Male

DRUGS (1)
  1. ELOCON [Suspect]
     Active Substance: MOMETASONE FUROATE
     Indication: PRURITUS
     Dosage: STRENGTH: 30 ML, 0.1%, UNK
     Dates: start: 201706, end: 20171015

REACTIONS (3)
  - Xeroderma [Unknown]
  - Cataract [Unknown]
  - Product use in unapproved indication [Unknown]

NARRATIVE: CASE EVENT DATE: 2017
